FAERS Safety Report 4681596-1 (Version None)
Quarter: 2005Q2

REPORT INFORMATION
  Report Type: 
  Country: None (occurrence: None)
  Receive Date: 20050602
  Receipt Date: 20050520
  Transmission Date: 20051028
  Serious: Yes (Disabling)
  Sender: FDA-Public Use
  Company Number: 2005077419

PATIENT
  Age: 85 Year
  Sex: Female
  Weight: 54.4316 kg

DRUGS (3)
  1. FLAGYL [Suspect]
     Indication: CLOSTRIDIAL INFECTION
     Dosage: ORAL
     Route: 048
     Dates: start: 20050101
  2. ANTICOAGULANTS (ANTITHROMBOTIC AGENTS) [Concomitant]
  3. AL OTHER THERAPEUTIC PRODUCTS 9ALL OTHER THERAPEUTIC PRODUCTS) [Concomitant]

REACTIONS (7)
  - ASTHENIA [None]
  - DYSGEUSIA [None]
  - DYSSTASIA [None]
  - FALL [None]
  - HYPOKINESIA [None]
  - TREATMENT NONCOMPLIANCE [None]
  - WEIGHT DECREASED [None]
